FAERS Safety Report 20952352 (Version 2)
Quarter: 2022Q3

REPORT INFORMATION
  Report Type: Spontaneous
  Country: US (occurrence: US)
  Receive Date: 20220613
  Receipt Date: 20220801
  Transmission Date: 20221026
  Serious: No
  Sender: FDA-Public Use
  Company Number: US-BRISTOL-MYERS SQUIBB COMPANY-2022-042630

PATIENT
  Age: 49 Year
  Sex: Female

DRUGS (3)
  1. ORENCIA [Suspect]
     Active Substance: ABATACEPT
     Indication: Rheumatoid arthritis
     Route: 058
     Dates: start: 202110
  2. ORENCIA [Suspect]
     Active Substance: ABATACEPT
     Indication: Rheumatoid arthritis
     Route: 058
     Dates: start: 20220427
  3. ORENCIA [Suspect]
     Active Substance: ABATACEPT
     Indication: Multiple sclerosis

REACTIONS (5)
  - Hypersensitivity [Unknown]
  - Injection site pruritus [Unknown]
  - Lip swelling [Unknown]
  - Swelling face [Unknown]
  - Drug ineffective [Unknown]
